FAERS Safety Report 4398191-4 (Version None)
Quarter: 2004Q3

REPORT INFORMATION
  Report Type: 
  Country: None (occurrence: None)
  Receive Date: 20040714
  Receipt Date: 20040714
  Transmission Date: 20050211
  Serious: Yes (Hospitalization)
  Sender: FDA-Public Use
  Company Number: None

PATIENT
  Sex: Female

DRUGS (20)
  1. ERTAPENEM [Suspect]
     Indication: DECUBITUS ULCER
     Dosage: 1 GM DAILY INTRAVENOUS
     Route: 042
     Dates: start: 20040401, end: 20040402
  2. ERTAPENEM [Suspect]
     Indication: SEPSIS
     Dosage: 1 GM DAILY INTRAVENOUS
     Route: 042
     Dates: start: 20040401, end: 20040402
  3. ERTAPENEM [Suspect]
     Indication: SKIN INFECTION
     Dosage: 1 GM DAILY INTRAVENOUS
     Route: 042
     Dates: start: 20040401, end: 20040402
  4. ERTAPENEM [Suspect]
     Indication: URINARY TRACT INFECTION
     Dosage: 1 GM DAILY INTRAVENOUS
     Route: 042
     Dates: start: 20040401, end: 20040402
  5. CEFTRIAXONE [Concomitant]
  6. GATIFLOXACIN [Concomitant]
  7. PIPERACILLIN/TAZO [Concomitant]
  8. VANCO [Concomitant]
  9. ALBUTEROL/IPRATROPIUM [Concomitant]
  10. BACLOFEN [Concomitant]
  11. FENTANYL [Concomitant]
  12. GUAF/CODEINE [Concomitant]
  13. MIRTAZAPINE [Concomitant]
  14. OXYCODONE HCL [Concomitant]
  15. IOVERSOL [Concomitant]
  16. ZINC [Concomitant]
  17. VIT C [Concomitant]
  18. RANITIDINE [Concomitant]
  19. PANTOPRAZOLE [Concomitant]
  20. FOLIC ACID [Concomitant]

REACTIONS (4)
  - CONVULSION [None]
  - DECUBITUS ULCER [None]
  - MENTAL STATUS CHANGES [None]
  - SEPSIS [None]
